FAERS Safety Report 24663287 (Version 2)
Quarter: 2024Q4

REPORT INFORMATION
  Report Type: Spontaneous
  Country: IN (occurrence: IN)
  Receive Date: 20241126
  Receipt Date: 20241203
  Transmission Date: 20250115
  Serious: Yes (Other)
  Sender: ROCHE
  Company Number: IN-ROCHE-10000029281

PATIENT
  Age: 55 Year
  Sex: Male

DRUGS (1)
  1. GAZYVA [Suspect]
     Active Substance: OBINUTUZUMAB
     Indication: Nephrotic syndrome
     Route: 042
     Dates: start: 20240703

REACTIONS (4)
  - Glomerulonephritis membranous [Unknown]
  - Off label use [Unknown]
  - Proteinuria [Unknown]
  - Pyrexia [Unknown]
